FAERS Safety Report 5533943-6 (Version None)
Quarter: 2007Q4

REPORT INFORMATION
  Report Type: 
  Country: None (occurrence: None)
  Receive Date: 20071129
  Receipt Date: 20071114
  Transmission Date: 20080405
  Serious: Yes (Death, Hospitalization)
  Sender: FDA-Public Use
  Company Number: 8028145

PATIENT
  Age: 52 Year
  Sex: Female

DRUGS (4)
  1. KEPPRA [Suspect]
     Indication: EPILEPSY
     Dosage: 500 MG 2/D PO
     Route: 048
     Dates: start: 20070208, end: 20071001
  2. DILANTIN [Concomitant]
  3. NORVASC /00972401/ [Concomitant]
  4. DEPAKENE [Concomitant]

REACTIONS (4)
  - CONVULSION [None]
  - HEPATIC STEATOSIS [None]
  - HEPATITIS ACUTE [None]
  - SUDDEN DEATH [None]
